FAERS Safety Report 15406004 (Version 1)
Quarter: 2018Q3

REPORT INFORMATION
  Report Type: Spontaneous
  Country: US (occurrence: US)
  Receive Date: 20180920
  Receipt Date: 20180920
  Transmission Date: 20181010
  Serious: Yes (Other)
  Sender: FDA-Public Use
  Company Number: US-PFIZER INC-2018376829

PATIENT
  Age: 63 Year
  Sex: Female
  Weight: 72.57 kg

DRUGS (1)
  1. LATANOPROST. [Suspect]
     Active Substance: LATANOPROST
     Indication: BORDERLINE GLAUCOMA
     Dosage: 2 GTT, UNK (ONE TIME, ONE DROP IN EACH EYE)

REACTIONS (2)
  - Product use in unapproved indication [Unknown]
  - Eye burns [Unknown]
